FAERS Safety Report 16027865 (Version 1)
Quarter: 2019Q1

REPORT INFORMATION
  Report Type: Spontaneous
  Country: US (occurrence: US)
  Receive Date: 20190304
  Receipt Date: 20190304
  Transmission Date: 20190418
  Serious: No
  Sender: FDA-Public Use
  Company Number: US-IMPAX LABORATORIES, LLC-2018-IPXL-00972

PATIENT
  Age: 70 Year
  Sex: Female
  Weight: 58 kg

DRUGS (6)
  1. RYTARY [Suspect]
     Active Substance: CARBIDOPA\LEVODOPA
     Dosage: 61.25/245 MG, 7-8 CAPSULES OVER 24 HR PERIOD
     Route: 048
     Dates: start: 201711
  2. RYTARY [Suspect]
     Active Substance: CARBIDOPA\LEVODOPA
     Indication: PARKINSON^S DISEASE
     Dosage: 61.25/245 MG, UNK
     Route: 048
     Dates: start: 20170815
  3. RYTARY [Suspect]
     Active Substance: CARBIDOPA\LEVODOPA
     Dosage: 61.25/245 MG, ONE CAPSULE EVERY SIX HOUR
     Route: 048
  4. RYTARY [Suspect]
     Active Substance: CARBIDOPA\LEVODOPA
     Dosage: 61.25/245 MG, 1 CAPSULE AT 6 AM, 2 AT 10 AM, 2 CAPSULES IN AFTERNOON, 1 CAPSULE IN EVENING
     Route: 048
  5. RYTARY [Suspect]
     Active Substance: CARBIDOPA\LEVODOPA
     Dosage: 61.25/245 MG,3 CAPSULE, THREE TIMES DAILY
     Route: 048
  6. RYTARY [Suspect]
     Active Substance: CARBIDOPA\LEVODOPA
     Dosage: 61.25/245 MG, 2 CAPSULES, EVERY 4 HOURS
     Route: 048

REACTIONS (12)
  - Thinking abnormal [Recovering/Resolving]
  - Dyskinesia [Not Recovered/Not Resolved]
  - Weight decreased [Not Recovered/Not Resolved]
  - Urinary tract infection [Unknown]
  - Drug withdrawal syndrome [Recovering/Resolving]
  - Tremor [Not Recovered/Not Resolved]
  - Mania [Unknown]
  - Anger [Recovering/Resolving]
  - Hallucination, visual [Recovering/Resolving]
  - Nightmare [Recovering/Resolving]
  - Therapeutic response shortened [Unknown]
  - Headache [Recovering/Resolving]
